FAERS Safety Report 15284556 (Version 7)
Quarter: 2018Q4

REPORT INFORMATION
  Report Type: Spontaneous
  Country: US (occurrence: US)
  Receive Date: 20180816
  Receipt Date: 20181207
  Transmission Date: 20190204
  Serious: Yes (Congenital Anomaly, Other)
  Sender: FDA-Public Use
  Company Number: PHEH2018US033873

PATIENT
  Sex: Female

DRUGS (3)
  1. ZOFRAN [Suspect]
     Active Substance: ONDANSETRON HYDROCHLORIDE
     Indication: FOETAL EXPOSURE DURING PREGNANCY
     Dosage: MOTHER DOSE: 02 MG/ML, UNK
     Route: 064
  2. ONDANSETRON DR REDDY [Suspect]
     Active Substance: ONDANSETRON
     Indication: FOETAL EXPOSURE DURING PREGNANCY
     Dosage: MOTHER DOSE: 08 MG, Q6H
     Route: 064
  3. ZOFRAN [Suspect]
     Active Substance: ONDANSETRON HYDROCHLORIDE
     Indication: FOETAL EXPOSURE DURING PREGNANCY
     Dosage: MOTHER DOSE: 01 DF, Q6H
     Route: 064

REACTIONS (41)
  - Single umbilical artery [Unknown]
  - Laevocardia [Unknown]
  - Atrial septal defect [Unknown]
  - Jaundice [Unknown]
  - Umbilical hernia [Unknown]
  - Cough [Unknown]
  - Pyrexia [Unknown]
  - Asthma [Unknown]
  - Ventricular septal defect [Unknown]
  - Tricuspid valve incompetence [Unknown]
  - Diarrhoea [Unknown]
  - Decreased appetite [Unknown]
  - Eczema [Unknown]
  - Chest pain [Unknown]
  - Left-to-right cardiac shunt [Unknown]
  - Upper respiratory tract congestion [Unknown]
  - Chills [Unknown]
  - Pulmonary valve incompetence [Unknown]
  - Lice infestation [Unknown]
  - Dermatitis atopic [Unknown]
  - Heart disease congenital [Unknown]
  - Pneumonia [Unknown]
  - Pruritus [Unknown]
  - Upper respiratory tract infection [Unknown]
  - Ear infection [Unknown]
  - Sinusitis [Unknown]
  - Bronchitis [Unknown]
  - Cytogenetic abnormality [Unknown]
  - Foetal exposure during pregnancy [Unknown]
  - Vomiting [Unknown]
  - Lethargy [Unknown]
  - Rhinorrhoea [Unknown]
  - Nasal congestion [Unknown]
  - Mitral valve incompetence [Unknown]
  - Bronchiolitis [Unknown]
  - Fatigue [Unknown]
  - Foetal distress syndrome [Unknown]
  - Cardiac murmur [Unknown]
  - Viral upper respiratory tract infection [Unknown]
  - Otitis media acute [Unknown]
  - Dyspnoea [Unknown]
